FAERS Safety Report 4578369-7 (Version None)
Quarter: 2005Q1

REPORT INFORMATION
  Report Type: 
  Country: None (occurrence: None)
  Receive Date: 20050202
  Receipt Date: 20050202
  Transmission Date: 20050727
  Serious: Yes (Hospitalization)
  Sender: FDA-Public Use
  Company Number: None

PATIENT
  Age: 85 Year
  Sex: Female
  Weight: 58 kg

DRUGS (5)
  1. SEROQUEL [Suspect]
     Indication: PSYCHOTIC DISORDER
     Dosage: 25MG Q AM / 50MG QHS
  2. SYNTHROID [Concomitant]
  3. ARICEPT [Concomitant]
  4. VITC/VIT E [Concomitant]
  5. SELEGILINE HCL [Concomitant]

REACTIONS (4)
  - COMA [None]
  - ELECTROCARDIOGRAM PR PROLONGATION [None]
  - SINUS BRADYCARDIA [None]
  - SYNCOPE [None]
